FAERS Safety Report 18091609 (Version 6)
Quarter: 2020Q3

REPORT INFORMATION
  Report Type: Report from Study
  Country: US (occurrence: US)
  Receive Date: 20200730
  Receipt Date: 20200922
  Transmission Date: 20201103
  Serious: Yes (Other)
  Sender: FDA-Public Use
  Company Number: NVSC2020US200797

PATIENT
  Age: 65 Year
  Sex: Female

DRUGS (2)
  1. COSENTYX [Suspect]
     Active Substance: SECUKINUMAB
     Indication: PSORIASIS
     Dosage: 300 MG, QW (2 PENS AT WEEKS 0, 1, 2, 3, AND 4 THEN EVERY 4 WEEKS THERE AFTER)
     Route: 058
     Dates: start: 20200701
  2. COSENTYX [Suspect]
     Active Substance: SECUKINUMAB
     Indication: PSORIATIC ARTHROPATHY

REACTIONS (5)
  - Urticaria [Recovered/Resolved]
  - Therapeutic response shortened [Unknown]
  - Injection site urticaria [Recovered/Resolved]
  - Eye inflammation [Recovered/Resolved]
  - Pruritus [Unknown]

NARRATIVE: CASE EVENT DATE: 20200715
